FAERS Safety Report 9798241 (Version 1)
Quarter: 2014Q1

REPORT INFORMATION
  Report Type: Spontaneous
  Country: US (occurrence: None)
  Receive Date: 20140103
  Receipt Date: 20140103
  Transmission Date: 20141002
  Serious: Yes (Disabling)
  Sender: FDA-Public Use
  Company Number: None

PATIENT
  Age: 60 Year
  Sex: Male
  Weight: 90.72 kg

DRUGS (5)
  1. VOLTAREN GEL [Suspect]
     Indication: OSTEOARTHRITIS
     Route: 061
     Dates: start: 20130613, end: 20140102
  2. ASPIRIN [Concomitant]
  3. CLARITIN [Concomitant]
  4. VITAMIN [Concomitant]
  5. MULTIVITAMIN/MINERAL SUPPLEMENT [Concomitant]

REACTIONS (7)
  - Deafness [None]
  - Tinnitus [None]
  - Dizziness [None]
  - Motion sickness [None]
  - Feeling abnormal [None]
  - Rash [None]
  - Skin ulcer [None]
